FAERS Safety Report 12717331 (Version 3)
Quarter: 2016Q4

REPORT INFORMATION
  Report Type: Report from Study
  Country: CA (occurrence: CA)
  Receive Date: 20160906
  Receipt Date: 20161214
  Transmission Date: 20170207
  Serious: Yes (Other)
  Sender: FDA-Public Use
  Company Number: CA-PFIZER INC-2016406835

PATIENT
  Age: 54 Year
  Sex: Male

DRUGS (6)
  1. RABEPRAZOLE [Concomitant]
     Active Substance: RABEPRAZOLE
     Dosage: UNK
  2. TECTA [Suspect]
     Active Substance: PANTOPRAZOLE MAGNESIUM
     Dosage: UNKNOWN DOSE
  3. ENTYVIO [Suspect]
     Active Substance: VEDOLIZUMAB
     Dosage: 300 MG, UNK
     Route: 042
     Dates: start: 20160512, end: 20161017
  4. IRON [Concomitant]
     Active Substance: IRON
     Dosage: UNK
  5. SYMBICORT [Concomitant]
     Active Substance: BUDESONIDE\FORMOTEROL FUMARATE DIHYDRATE
     Dosage: UNK
  6. FOLIC ACID. [Concomitant]
     Active Substance: FOLIC ACID
     Dosage: UNK

REACTIONS (4)
  - Crohn^s disease [Unknown]
  - Condition aggravated [Unknown]
  - Malaise [Unknown]
  - Drug ineffective [Unknown]

NARRATIVE: CASE EVENT DATE: 201605
